FAERS Safety Report 24199582 (Version 2)
Quarter: 2024Q3

REPORT INFORMATION
  Report Type: Spontaneous
  Country: GB (occurrence: GB)
  Receive Date: 20240812
  Receipt Date: 20240917
  Transmission Date: 20241016
  Serious: Yes (Death, Hospitalization, Other)
  Sender: MYLAN
  Company Number: GB-MYLANLABS-2024M1074685

PATIENT
  Sex: Male

DRUGS (1)
  1. CLOZARIL [Suspect]
     Active Substance: CLOZAPINE
     Indication: Schizophrenia
     Dosage: 100 MILLIGRAM, BID (TWICE DAILY)
     Route: 048
     Dates: start: 20170131

REACTIONS (4)
  - Respiratory failure [Fatal]
  - Pulmonary cavitation [Unknown]
  - Fall [Unknown]
  - Lower respiratory tract infection [Unknown]
